FAERS Safety Report 6207893-6 (Version None)
Quarter: 2009Q2

REPORT INFORMATION
  Report Type: 
  Country: None (occurrence: None)
  Receive Date: 20090529
  Receipt Date: 20090525
  Transmission Date: 20091009
  Serious: Yes (Death, Life-Threatening, Hospitalization)
  Sender: FDA-Public Use
  Company Number: DE-TEVA-195998ISR

PATIENT
  Age: 19 Year
  Sex: Male

DRUGS (3)
  1. CISPLATIN [Suspect]
     Indication: TESTICULAR GERM CELL CANCER
  2. ETOPOSIDE [Suspect]
     Indication: TESTICULAR GERM CELL CANCER
  3. IFOSFAMIDE [Suspect]

REACTIONS (1)
  - ACUTE RESPIRATORY DISTRESS SYNDROME [None]
